FAERS Safety Report 19367368 (Version 1)
Quarter: 2021Q2

REPORT INFORMATION
  Report Type: Spontaneous
  Country: ES (occurrence: ES)
  Receive Date: 20210603
  Receipt Date: 20210603
  Transmission Date: 20210717
  Serious: Yes (Other)
  Sender: FDA-Public Use
  Company Number: ES-TEVA-2021-ES-1917383

PATIENT
  Age: 82 Year
  Sex: Female

DRUGS (10)
  1. ORFIDAL 1 MG COMPRIMIDOS, 50 COMPRIMIDOS [Concomitant]
     Active Substance: LORAZEPAM
  2. BETMIGA [Concomitant]
     Active Substance: MIRABEGRON
  3. AMLODIPINO [AMLODIPINE] [Suspect]
     Active Substance: AMLODIPINE BESYLATE
     Indication: HYPERTENSION
     Dosage: 10 MILLIGRAM DAILY;
     Route: 048
     Dates: start: 20210504
  4. LEXATIN 1,5 MG CAPSULAS DURAS , 30 CAPSULAS [Concomitant]
  5. RAMIPRIL 5 MG 28 COMPRIMIDOS [Concomitant]
  6. ATORVASTATINA (7400A) [Concomitant]
     Active Substance: ATORVASTATIN
  7. CLOPIDOGREL [Concomitant]
     Active Substance: CLOPIDOGREL BISULFATE
  8. EUTIROX 100 MICROGRAMOS COMPRIMIDOS [Concomitant]
     Active Substance: LEVOTHYROXINE SODIUM
  9. NEXIUM MUPS 20 MG COMPRIMIDOS GASTRORRESISTENTES [Concomitant]
  10. NITROPLAST 10 PARCHES TRANSDERMICOS [Concomitant]

REACTIONS (2)
  - Oedema peripheral [Unknown]
  - Urinary retention [Unknown]

NARRATIVE: CASE EVENT DATE: 20210510
